FAERS Safety Report 6915427-3 (Version None)
Quarter: 2010Q3

REPORT INFORMATION
  Report Type: 
  Country: None (occurrence: None)
  Receive Date: 20100806
  Receipt Date: 20100806
  Transmission Date: 20110219
  Serious: Yes (Other)
  Sender: FDA-Public Use
  Company Number: None

PATIENT
  Sex: Female

DRUGS (1)
  1. LUSEDRA [Suspect]
     Indication: ANAESTHESIA
     Dosage: IV
     Route: 042

REACTIONS (1)
  - VULVOVAGINAL BURNING SENSATION [None]
